FAERS Safety Report 8502823-6 (Version None)
Quarter: 2012Q3

REPORT INFORMATION
  Report Type: 
  Country: None (occurrence: None)
  Receive Date: 20120711
  Receipt Date: 20120702
  Transmission Date: 20120928
  Serious: Yes (Disabling)
  Sender: FDA-Public Use
  Company Number: FR-PFIZER INC-2012163951

PATIENT
  Age: 62 Year
  Sex: Male
  Weight: 85 kg

DRUGS (9)
  1. ISENTRESS [Suspect]
     Indication: HIV INFECTION
     Dosage: 1 DF, 2X/DAY
     Route: 048
     Dates: start: 20090601
  2. VITAMIN D [Concomitant]
  3. ALLOPURINOL [Concomitant]
     Dosage: 300 MG, UNK
  4. RAMIPRIL [Concomitant]
  5. ETRAVIRINE [Interacting]
     Indication: HIV INFECTION
     Dosage: 2 DF, 2X/DAY
     Route: 048
     Dates: start: 20090601
  6. BISOPROLOL [Concomitant]
  7. PANTOPRAZOLE SODIUM [Interacting]
     Indication: OESOPHAGITIS
     Dosage: 40 MG, 2X/DAY
     Route: 048
  8. LAMISIL [Concomitant]
  9. EZETIMIBE [Concomitant]
     Dosage: 10 MG, UNK

REACTIONS (2)
  - NEUROPATHY PERIPHERAL [None]
  - DRUG INTERACTION [None]
